FAERS Safety Report 9879944 (Version 2)
Quarter: 2014Q1

REPORT INFORMATION
  Report Type: Report from Study
  Country: DE (occurrence: DE)
  Receive Date: 20140207
  Receipt Date: 20140227
  Transmission Date: 20141002
  Serious: Yes (Hospitalization)
  Sender: FDA-Public Use
  Company Number: DE-ROCHE-1344063

PATIENT
  Age: 74 Year
  Sex: Female

DRUGS (8)
  1. RITUXIMAB [Suspect]
     Indication: RHEUMATOID ARTHRITIS
     Route: 042
     Dates: start: 20120911
  2. METHOTREXATE [Suspect]
     Indication: PRODUCT USED FOR UNKNOWN INDICATION
     Route: 048
     Dates: start: 1991, end: 201001
  3. METHOTREXATE [Suspect]
     Route: 048
     Dates: start: 201209
  4. CYCLOSPORIN A [Concomitant]
     Route: 065
     Dates: start: 201104, end: 201111
  5. CYCLOSPORIN A [Concomitant]
     Route: 065
     Dates: start: 201203, end: 201209
  6. FOLSAN [Concomitant]
     Route: 048
     Dates: start: 20071113
  7. CLOBETASOL [Concomitant]
     Route: 065
     Dates: start: 20101025
  8. OXAZEPAM [Concomitant]
     Route: 048
     Dates: start: 20121025

REACTIONS (6)
  - Impaired healing [Not Recovered/Not Resolved]
  - Wound infection [Unknown]
  - Tendon rupture [Unknown]
  - Hand deformity [Unknown]
  - Synovitis [Unknown]
  - Hyponatraemia [Unknown]
